FAERS Safety Report 8435777-1 (Version None)
Quarter: 2012Q2

REPORT INFORMATION
  Report Type: 
  Country: None (occurrence: None)
  Receive Date: 20120614
  Receipt Date: 20120531
  Transmission Date: 20120825
  Serious: Yes (Hospitalization, Other)
  Sender: FDA-Public Use
  Company Number: US-ELI_LILLY_AND_COMPANY-US201205008284

PATIENT
  Sex: Female

DRUGS (16)
  1. ASPIRIN [Concomitant]
     Indication: STENT PLACEMENT
     Dosage: 325 MG, QD
  2. HYDROCODONE BITARTRATE AND ACETAMINOPHEN [Concomitant]
     Indication: PAIN
     Dosage: 30 DF, PRN
  3. MOTRIN [Concomitant]
     Dosage: UNK, PRN
  4. BUSPIRONE HCL [Concomitant]
     Dosage: 10 MG, BID
  5. MULTI-VITAMINS [Concomitant]
     Dosage: UNK
  6. VITAMIN B-12 [Concomitant]
     Dosage: 250 UG, QD
     Route: 060
  7. FORTEO [Suspect]
     Indication: OSTEOPOROSIS
     Dosage: 20 UG, QD
     Route: 058
     Dates: start: 20120223
  8. TUSSIONEX [Concomitant]
     Indication: NASOPHARYNGITIS
     Dosage: UNK
  9. KLONOPIN [Concomitant]
     Dosage: 0.5 MG, BID
  10. LISINOPRIL [Concomitant]
     Dosage: 5 MG, QD
  11. CELEXA [Concomitant]
     Dosage: 40 MG, QD
     Route: 048
  12. PREMARIN [Concomitant]
     Dosage: UNK, OTHER
  13. NITROSTAT [Concomitant]
     Indication: CHEST PAIN
     Dosage: UNK
     Route: 060
     Dates: start: 20110701
  14. METFORMIN HCL [Concomitant]
     Dosage: 500 MG, BID
     Route: 048
  15. VIACTIV                                 /USA/ [Concomitant]
     Dosage: UNK, QD
  16. EFFIENT [Concomitant]
     Indication: STENT PLACEMENT
     Dosage: 10 MG, QD

REACTIONS (5)
  - ASTHENIA [None]
  - FEMUR FRACTURE [None]
  - FALL [None]
  - ACCIDENT [None]
  - HAEMORRHAGE [None]
